FAERS Safety Report 11596925 (Version 4)
Quarter: 2015Q4

REPORT INFORMATION
  Report Type: Spontaneous
  Country: US (occurrence: US)
  Receive Date: 20151006
  Receipt Date: 20151211
  Transmission Date: 20160304
  Serious: Yes (Hospitalization)
  Sender: FDA-Public Use
  Company Number: US-SA-2015SA150245

PATIENT
  Age: 55 Year
  Sex: Male

DRUGS (5)
  1. LANTUS SOLOSTAR [Suspect]
     Active Substance: INSULIN GLARGINE
     Indication: TYPE 1 DIABETES MELLITUS
     Dosage: DOSE:25 UNIT(S)
     Route: 065
     Dates: start: 2012
  2. HUMALOG [Concomitant]
     Active Substance: INSULIN LISPRO
  3. LANTUS SOLOSTAR [Suspect]
     Active Substance: INSULIN GLARGINE
     Indication: TYPE 1 DIABETES MELLITUS
     Dosage: DOSE:25 UNIT(S)
     Route: 065
     Dates: start: 2012
  4. SOLOSTAR [Suspect]
     Active Substance: DEVICE
     Route: 065
     Dates: start: 2012
  5. SOLOSTAR [Suspect]
     Active Substance: DEVICE
     Route: 065
     Dates: start: 2012

REACTIONS (8)
  - Vitreous floaters [Unknown]
  - Drug administration error [Unknown]
  - Sensory loss [Unknown]
  - Diabetic neuropathy [Unknown]
  - Pancreatitis chronic [Unknown]
  - Visual acuity reduced [Unknown]
  - Blood glucose increased [Unknown]
  - Condition aggravated [Unknown]
